FAERS Safety Report 9341701 (Version 7)
Quarter: 2014Q1

REPORT INFORMATION
  Report Type: Report from Study
  Country: DE (occurrence: DE)
  Receive Date: 20130611
  Receipt Date: 20140124
  Transmission Date: 20141002
  Serious: Yes (Hospitalization)
  Sender: FDA-Public Use
  Company Number: DE-ROCHE-1230382

PATIENT
  Age: 48 Year
  Sex: Male
  Weight: 102 kg

DRUGS (15)
  1. RITUXIMAB [Suspect]
     Indication: B-CELL LYMPHOMA
     Route: 042
     Dates: start: 20130506
  2. RHUPH20/RITUXIMAB [Suspect]
     Indication: B-CELL LYMPHOMA
     Dosage: DATE OF LAST DOSE PRIOR TO SAE: 28/MAY/2013.
     Route: 058
     Dates: start: 20130506
  3. APREPITANT [Concomitant]
     Indication: NAUSEA
     Route: 042
     Dates: start: 20130506
  4. FORTECORTIN [Concomitant]
     Route: 042
     Dates: start: 20130506
  5. CLEMASTIN [Concomitant]
     Dosage: 1 AMPOULE
     Route: 042
     Dates: start: 20130506
  6. RANITIDINE [Concomitant]
     Dosage: 1 AMPUOLE
     Route: 042
     Dates: start: 20130506
  7. METOCLOPRAMIDE [Concomitant]
     Indication: NAUSEA
     Dosage: 20 DROPS
     Route: 048
     Dates: start: 20130507
  8. METOCLOPRAMIDE [Concomitant]
     Dosage: 1 AMPOULE
     Route: 042
     Dates: start: 20130528, end: 20130528
  9. LORATADINE [Concomitant]
     Indication: PRURITUS
     Route: 048
     Dates: start: 20130529, end: 20130531
  10. LORATADINE [Concomitant]
     Route: 048
     Dates: start: 20130617
  11. PREDNISOLONE [Concomitant]
     Indication: PRURITUS
     Route: 048
     Dates: start: 20130528, end: 20130531
  12. PREDNISOLONE [Concomitant]
     Route: 048
     Dates: start: 20130617
  13. DICLOFENAC [Concomitant]
     Indication: ARTHRALGIA
     Route: 048
     Dates: start: 20130506
  14. HEPARIN [Concomitant]
     Route: 065
     Dates: start: 20130619
  15. BENDAMUSTINE [Concomitant]
     Route: 042

REACTIONS (2)
  - Pyrexia [Recovered/Resolved]
  - Dermatitis allergic [Recovered/Resolved]
